FAERS Safety Report 9577759 (Version 1)
Quarter: 2013Q4

REPORT INFORMATION
  Report Type: Spontaneous
  Country: US (occurrence: US)
  Receive Date: 20131001
  Receipt Date: 20131001
  Transmission Date: 20140711
  Serious: No
  Sender: FDA-Public Use
  Company Number: US-AMGEN-USASP2013009432

PATIENT
  Age: 60 Year
  Sex: Male

DRUGS (9)
  1. ENBREL [Suspect]
     Indication: PSORIATIC ARTHROPATHY
     Dosage: 50 MG, Q2WK
     Route: 058
  2. PAXIL                              /00500401/ [Concomitant]
     Dosage: 30 MG, UNK
  3. LACTAID [Concomitant]
     Dosage: 3000 UNIT, UNK
  4. RAMIPRIL [Concomitant]
     Dosage: 10 MG, UNK
  5. METHOTREXATE [Concomitant]
     Dosage: 2.5 MG, UNK
  6. FOLIC ACID [Concomitant]
     Dosage: 1 MG, UNK
  7. LEVOTHYROXINE [Concomitant]
     Dosage: 125 MUG, UNK
  8. MULTIVITAMINS, PLAIN [Concomitant]
     Dosage: UNK
  9. OMEGA 3 6 9 [Concomitant]
     Dosage: UNK

REACTIONS (1)
  - Weight increased [Unknown]
